FAERS Safety Report 8876157 (Version 1)
Quarter: 2012Q4

REPORT INFORMATION
  Report Type: 
  Country: PL (occurrence: PL)
  Receive Date: 20121023
  Receipt Date: 20121023
  Transmission Date: 20130627
  Serious: Yes (Hospitalization)
  Sender: FDA-Public Use
  Company Number: PL-BAYER-2012-107277

PATIENT
  Age: 54 Year
  Sex: Male
  Weight: 73 kg

DRUGS (2)
  1. ALEVE [Suspect]
     Indication: PAIN IN LIMB
     Dosage: UNK
     Route: 048
     Dates: start: 20120710, end: 20120715
  2. TOLPERISONE [Suspect]
     Indication: PAIN IN LIMB
     Dosage: UNK
     Route: 048
     Dates: start: 20120710, end: 20120715

REACTIONS (1)
  - Vasculitis necrotising [None]
